FAERS Safety Report 24193910 (Version 2)
Quarter: 2024Q3

REPORT INFORMATION
  Report Type: Spontaneous
  Country: CN (occurrence: CN)
  Receive Date: 20240809
  Receipt Date: 20240820
  Transmission Date: 20241017
  Serious: Yes (Death, Other)
  Sender: BRACCO
  Company Number: CN-BRACCO-2024CN04871

PATIENT
  Age: 62 Year
  Sex: Male

DRUGS (12)
  1. MULTIHANCE [Suspect]
     Active Substance: GADOBENATE DIMEGLUMINE
     Indication: Magnetic resonance imaging
     Dosage: 15 ML, SINGLE
     Route: 042
     Dates: start: 20240805, end: 20240805
  2. Bozhi glycopeptide [Concomitant]
     Dosage: 10 MG, QD
     Route: 041
     Dates: start: 20240801, end: 20240805
  3. FOLIC ACID [Concomitant]
     Active Substance: FOLIC ACID
     Dosage: 0.4 MG, QD
     Route: 048
     Dates: start: 20240801, end: 20240805
  4. LIDOCAINE [Concomitant]
     Active Substance: LIDOCAINE
     Indication: Local anaesthesia
     Dosage: 0.1 G, ST
     Dates: start: 20240801, end: 20240801
  5. OMEPRAZOLE [Concomitant]
     Active Substance: OMEPRAZOLE
     Dosage: 10 MG, QD
     Route: 048
     Dates: start: 20240801, end: 20240805
  6. ACETAMINOPHEN\DIHYDROCODEINE BITARTRATE [Concomitant]
     Active Substance: ACETAMINOPHEN\DIHYDROCODEINE BITARTRATE
     Dosage: 1 TABLET, TID
     Route: 048
     Dates: start: 20240803, end: 20240805
  7. ACETAMINOPHEN\DIHYDROCODEINE BITARTRATE [Concomitant]
     Active Substance: ACETAMINOPHEN\DIHYDROCODEINE BITARTRATE
     Dosage: 1 TABLET, ST
     Route: 048
     Dates: start: 20240803, end: 20240803
  8. SODIUM CHLORIDE [Concomitant]
     Active Substance: SODIUM CHLORIDE
     Dosage: 100 ML, ST, FLUSH
     Dates: start: 20240801, end: 20240801
  9. SODIUM CHLORIDE [Concomitant]
     Active Substance: SODIUM CHLORIDE
     Dosage: 250 ML, QD
     Route: 041
     Dates: start: 20240801, end: 20240805
  10. SODIUM CHLORIDE [Concomitant]
     Active Substance: SODIUM CHLORIDE
     Dosage: 250 ML, ST
     Route: 041
     Dates: start: 20240801, end: 20240801
  11. TETRACAINE HYDROCHLORIDE [Concomitant]
     Active Substance: TETRACAINE HYDROCHLORIDE
     Indication: Local anaesthesia
     Dosage: 10 G, ST
     Dates: start: 20240801, end: 20240801
  12. VISIPAQUE [Concomitant]
     Active Substance: IODIXANOL
     Indication: Angiogram
     Dosage: 100 ML, ST
     Dates: start: 20240801, end: 20240801

REACTIONS (1)
  - Anaphylactic shock [Fatal]

NARRATIVE: CASE EVENT DATE: 20240805
